FAERS Safety Report 9410569 (Version 4)
Quarter: 2013Q4

REPORT INFORMATION
  Report Type: Spontaneous
  Country: DE (occurrence: DE)
  Receive Date: 20130719
  Receipt Date: 20131115
  Transmission Date: 20140711
  Serious: Yes (Death)
  Sender: FDA-Public Use
  Company Number: DE-UCBSA-091651

PATIENT
  Age: 59 Year
  Sex: Female
  Weight: 60 kg

DRUGS (2)
  1. KEPPRA [Suspect]
     Indication: CONVULSION
     Dosage: DOSE: 4000 MG
     Route: 048
     Dates: start: 2007
  2. L-THYROX 75 [Concomitant]
     Indication: HYPOTHYROIDISM
     Route: 048
     Dates: start: 2007

REACTIONS (4)
  - Sudden unexplained death in epilepsy [Fatal]
  - Cardiac failure [Fatal]
  - Aggression [Unknown]
  - Overdose [Unknown]
